FAERS Safety Report 17410119 (Version 2)
Quarter: 2020Q1

REPORT INFORMATION
  Report Type: Spontaneous
  Country: US (occurrence: US)
  Receive Date: 20200212
  Receipt Date: 20200326
  Transmission Date: 20200409
  Serious: No
  Sender: FDA-Public Use
  Company Number: US-TEVA-2020-US-1182344

PATIENT
  Age: 31 Year
  Sex: Female

DRUGS (4)
  1. PRENATAL VITAMINS [Concomitant]
     Active Substance: VITAMINS
  2. ACA [Concomitant]
  3. VITAMIN D [Concomitant]
     Active Substance: VITAMIN D NOS
  4. PROGESTERONE. [Suspect]
     Active Substance: PROGESTERONE
     Dosage: 50 MILLIGRAM DAILY;
     Route: 065
     Dates: start: 20200117, end: 20200201

REACTIONS (2)
  - Hypersensitivity [Not Recovered/Not Resolved]
  - Pruritus [Recovered/Resolved]

NARRATIVE: CASE EVENT DATE: 20200129
